FAERS Safety Report 4826867-0 (Version None)
Quarter: 2005Q4

REPORT INFORMATION
  Report Type: 
  Country: None (occurrence: None)
  Receive Date: 20051114
  Receipt Date: 20051018
  Transmission Date: 20060501
  Serious: Yes (Hospitalization)
  Sender: FDA-Public Use
  Company Number: AU-AMGEN-US154723

PATIENT
  Sex: Female

DRUGS (7)
  1. NEULASTA [Suspect]
     Indication: CHEMOTHERAPY
     Dates: start: 20051014, end: 20051015
  2. CYCLOPHOSPHAMIDE [Concomitant]
     Dates: start: 20051013, end: 20051013
  3. VINCRISTINE [Concomitant]
     Dates: start: 20051013, end: 20051013
  4. ADRIAMYCIN PFS [Concomitant]
     Dates: start: 20051013, end: 20051013
  5. PREDNISOLONE [Concomitant]
     Dates: start: 20051013, end: 20051013
  6. ONDANSETRON [Concomitant]
     Dates: start: 20051013, end: 20051015
  7. LAMIVUDINE [Concomitant]
     Dates: start: 20050929

REACTIONS (2)
  - CONSTIPATION [None]
  - PAIN IN JAW [None]
